FAERS Safety Report 4822760-8 (Version None)
Quarter: 2005Q4

REPORT INFORMATION
  Report Type: 
  Country: None (occurrence: None)
  Receive Date: 20051104
  Receipt Date: 20051019
  Transmission Date: 20060501
  Serious: Yes (Hospitalization)
  Sender: FDA-Public Use
  Company Number: 8012966

PATIENT
  Age: 67 Year
  Sex: Male

DRUGS (4)
  1. KEPPRA [Suspect]
     Indication: EPILEPSY
     Dosage: 500 MG 2/D PO
     Route: 048
     Dates: start: 20051005, end: 20051011
  2. NOOTROPIL [Concomitant]
  3. TOPAMAX [Concomitant]
  4. DOMPERIDON [Concomitant]

REACTIONS (1)
  - MOUTH ULCERATION [None]
